FAERS Safety Report 12085719 (Version 2)
Quarter: 2016Q1

REPORT INFORMATION
  Report Type: Spontaneous
  Country: JP (occurrence: JP)
  Receive Date: 20160217
  Receipt Date: 20160304
  Transmission Date: 20160526
  Serious: Yes (Life-Threatening, Hospitalization, Other)
  Sender: FDA-Public Use
  Company Number: JP-BAYER-2016-025639

PATIENT
  Age: 57 Year
  Sex: Male
  Weight: 74.5 kg

DRUGS (4)
  1. CRAVIT [Concomitant]
     Active Substance: LEVOFLOXACIN
     Indication: METASTASES TO LYMPH NODES
     Dosage: DAILY DOSE 500 MG
     Route: 048
     Dates: start: 20160125, end: 20160131
  2. OLMETEC [Concomitant]
     Active Substance: OLMESARTAN MEDOXOMIL
     Dosage: DAILY DOSE 20 MG
     Route: 048
  3. STIVARGA [Suspect]
     Active Substance: REGORAFENIB
     Indication: RECTAL CANCER
     Dosage: 160 MG, QD
     Route: 048
     Dates: start: 20160119, end: 20160201
  4. TRICOR [Concomitant]
     Active Substance: FENOFIBRATE
     Dosage: DAILY DOSE 160 MG
     Route: 048

REACTIONS (3)
  - Abdominal pain [Recovering/Resolving]
  - Large intestine perforation [Recovering/Resolving]
  - Metastases to lymph nodes [Recovered/Resolved]

NARRATIVE: CASE EVENT DATE: 20160121
